FAERS Safety Report 4078501 (Version 4)
Quarter: 2013Q1

REPORT INFORMATION
  Report Type: Report from Study
  Country: DE (occurrence: DE)
  Receive Date: 20040203
  Receipt Date: 20130204
  Transmission Date: 20140127
  Serious: Yes (Hospitalization)
  Sender: FDA-Public Use
  Company Number: PHHO2004DE01078

PATIENT
  Age: 62 Year
  Sex: Male

DRUGS (4)
  1. CGP 41251 [Suspect]
     Indication: GASTROINTESTINAL STROMAL TUMOUR
     Dosage: 100 MG, QD
     Route: 048
     Dates: start: 20031217
  2. CGP 41251 [Suspect]
     Dosage: 100 MG, BID
     Route: 048
     Dates: start: 20031226, end: 20040122
  3. GLIVEC [Suspect]
     Indication: GASTROINTESTINAL STROMAL TUMOUR
     Dosage: 100 MG, 6QD
     Route: 048
     Dates: start: 20031211, end: 20040122
  4. GLIVEC [Suspect]
     Route: 048

REACTIONS (4)
  - Hyperglycaemia [Recovered/Resolved]
  - Fatigue [Recovered/Resolved with Sequelae]
  - Diarrhoea [Recovered/Resolved with Sequelae]
  - Malignant neoplasm progression [Not Recovered/Not Resolved]
